FAERS Safety Report 8134667-1 (Version None)
Quarter: 2012Q1

REPORT INFORMATION
  Report Type: 
  Country: None (occurrence: None)
  Receive Date: 20120214
  Receipt Date: 20120208
  Transmission Date: 20120608
  Serious: Yes (Other)
  Sender: FDA-Public Use
  Company Number: US-BAYER-2012-013084

PATIENT
  Sex: Female

DRUGS (2)
  1. DROSPIRENONE AND ETHINYL ESTRADIOL [Suspect]
     Dosage: UNK
     Dates: start: 20090601, end: 20101201
  2. YAZ [Suspect]
     Dosage: UNK
     Dates: start: 20080401, end: 20090601

REACTIONS (2)
  - INJURY [None]
  - CHOLECYSTITIS ACUTE [None]
